FAERS Safety Report 8059132-1 (Version None)
Quarter: 2012Q1

REPORT INFORMATION
  Report Type: 
  Country: None (occurrence: None)
  Receive Date: 20120120
  Receipt Date: 20120116
  Transmission Date: 20120608
  Serious: Yes (Other)
  Sender: FDA-Public Use
  Company Number: US-SHIRE-ALL1-2012-00226

PATIENT
  Sex: Female

DRUGS (4)
  1. INTUNIV [Suspect]
     Dosage: 1 MG, UNKNOWN
     Route: 065
  2. INTUNIV [Suspect]
     Dosage: 2 MG, UNKNOWN
     Route: 065
  3. INTUNIV [Suspect]
     Indication: PRODUCT USED FOR UNKNOWN INDICATION
     Dosage: 3 MG, UNKNOWN
     Route: 065
  4. VYVANSE [Concomitant]
     Indication: PRODUCT USED FOR UNKNOWN INDICATION
     Dosage: 40 MG, UNKNOWN
     Route: 065

REACTIONS (7)
  - CHEST PAIN [None]
  - INCORRECT DOSE ADMINISTERED [None]
  - BUNDLE BRANCH BLOCK RIGHT [None]
  - VEIN DISORDER [None]
  - ANXIETY [None]
  - CARDIAC FLUTTER [None]
  - HYPOAESTHESIA [None]
